FAERS Safety Report 10222983 (Version 1)
Quarter: 2014Q2

REPORT INFORMATION
  Report Type: Spontaneous
  Country: US (occurrence: US)
  Receive Date: 20140607
  Receipt Date: 20140607
  Transmission Date: 20141212
  Serious: Yes (Other)
  Sender: FDA-Public Use
  Company Number: CHPA2014US007759

PATIENT
  Age: 47 Year
  Sex: Male

DRUGS (2)
  1. EXCEDRIN EXTRA STRENGTH [Suspect]
     Indication: MIGRAINE
     Dosage: 1/2 TO 3 DF
     Route: 048
  2. EXCEDRIN EXTRA STRENGTH [Suspect]
     Indication: OFF LABEL USE

REACTIONS (2)
  - Gastric ulcer [Not Recovered/Not Resolved]
  - Therapeutic response changed [Unknown]
